FAERS Safety Report 18874725 (Version 1)
Quarter: 2021Q1

REPORT INFORMATION
  Report Type: Spontaneous
  Country: IT (occurrence: IT)
  Receive Date: 20210211
  Receipt Date: 20210211
  Transmission Date: 20210420
  Serious: Yes (Death, Other)
  Sender: FDA-Public Use
  Company Number: IT-AMGEN-ITASP2021019187

PATIENT
  Sex: Female

DRUGS (11)
  1. OLAPARIB. [Concomitant]
     Active Substance: OLAPARIB
     Indication: OVARIAN CANCER
     Dosage: UNK
  2. TREOSULFAN [Concomitant]
     Active Substance: TREOSULFAN
     Dosage: UNK
  3. METHOTREXATE. [Concomitant]
     Active Substance: METHOTREXATE
     Dosage: 15 GRAM PER KILOGRAM, QD +1
  4. FILGRASTIM [Suspect]
     Active Substance: FILGRASTIM
     Indication: PROPHYLAXIS
     Dosage: UNK
     Route: 065
  5. IDARUBICIN [Concomitant]
     Active Substance: IDARUBICIN
     Indication: OVARIAN CANCER
     Dosage: 12 MILLIGRAM/SQ. METER D1?D3
  6. FLUDARABINE [Concomitant]
     Active Substance: FLUDARABINE PHOSPHATE
     Indication: OVARIAN CANCER
     Dosage: 30 MILLIGRAM/SQ. METER D1?5, (30 MG/MQ DAY(?6, ?5, ?4, ?3, ?2))
  7. VENETOCLAX. [Concomitant]
     Active Substance: VENETOCLAX
     Indication: MYELODYSPLASTIC SYNDROME
     Dosage: UNK
  8. CYTARABINE. [Concomitant]
     Active Substance: CYTARABINE
     Indication: OVARIAN CANCER
     Dosage: 100 MILLIGRAM/SQ. METER D1?7
  9. ETOPOSIDE. [Concomitant]
     Active Substance: ETOPOSIDE
     Indication: OVARIAN CANCER
     Dosage: 100 MILLIGRAM/SQ. METER 1?5
  10. DECITABINE. [Concomitant]
     Active Substance: DECITABINE
     Indication: MYELODYSPLASTIC SYNDROME
     Dosage: UNK
  11. TACROLIMUS. [Concomitant]
     Active Substance: TACROLIMUS
     Dosage: UNK (FROM +5 TO DAY 100(LEVEL 5?15 NG/ML))

REACTIONS (2)
  - Ovarian epithelial cancer recurrent [Unknown]
  - Myelodysplastic syndrome [Fatal]
